FAERS Safety Report 5117812-1 (Version None)
Quarter: 2006Q3

REPORT INFORMATION
  Report Type: 
  Country: None (occurrence: None)
  Receive Date: 20060926
  Receipt Date: 20060911
  Transmission Date: 20061208
  Serious: Yes (Other)
  Sender: FDA-Public Use
  Company Number: L06-CAN-03774-01

PATIENT
  Age: 26 Year
  Sex: Female

DRUGS (2)
  1. CITALOPRAM [Suspect]
     Dosage: 20 MG QD
  2. CITALOPRAM [Suspect]
     Dosage: 30 MG QD

REACTIONS (19)
  - AGITATION [None]
  - AKATHISIA [None]
  - ANHEDONIA [None]
  - ASTHENIA [None]
  - BIPOLAR II DISORDER [None]
  - CRYING [None]
  - DISEASE RECURRENCE [None]
  - DISTURBANCE IN ATTENTION [None]
  - DYSPHORIA [None]
  - HOMICIDAL IDEATION [None]
  - HYPOMANIA [None]
  - INSOMNIA [None]
  - IRRITABILITY [None]
  - MAJOR DEPRESSION [None]
  - MARITAL PROBLEM [None]
  - OBSESSIVE THOUGHTS [None]
  - POSTPARTUM DEPRESSION [None]
  - RESTLESSNESS [None]
  - THINKING ABNORMAL [None]
